FAERS Safety Report 9245111 (Version 1)
Quarter: 2013Q2

REPORT INFORMATION
  Report Type: Spontaneous
  Country: US (occurrence: US)
  Receive Date: 20130422
  Receipt Date: 20130422
  Transmission Date: 20140414
  Serious: No
  Sender: FDA-Public Use
  Company Number: US-PFIZER INC-2013122122

PATIENT
  Age: 71 Year
  Sex: Female
  Weight: 46.26 kg

DRUGS (2)
  1. CENTRUM SILVER ADULTS 50+ [Suspect]
     Indication: SUPPLEMENTATION THERAPY
     Dosage: UNK
     Dates: start: 20130413, end: 20130415
  2. LEVOTHYROXINE SODIUM [Interacting]
     Indication: HYPOTHYROIDISM
     Dosage: 25 UG, UNK
     Dates: start: 2010

REACTIONS (5)
  - Alopecia [Unknown]
  - Drug interaction [Unknown]
  - Asthenia [Unknown]
  - Abdominal discomfort [Unknown]
  - Abdominal pain upper [Unknown]
